FAERS Safety Report 8386076-8 (Version None)
Quarter: 2012Q2

REPORT INFORMATION
  Report Type: 
  Country: None (occurrence: None)
  Receive Date: 20120525
  Receipt Date: 20120524
  Transmission Date: 20120825
  Serious: Yes (Life-Threatening, Hospitalization, Other)
  Sender: FDA-Public Use
  Company Number: JP-GENZYME-THYM-1002660

PATIENT
  Sex: Female
  Weight: 49 kg

DRUGS (16)
  1. MELPHALAN HYDROCHLORIDE [Concomitant]
     Indication: EPSTEIN-BARR VIRUS INFECTION
     Dosage: UNK
     Route: 065
     Dates: start: 20101123, end: 20101124
  2. TACROLIMUS [Concomitant]
     Indication: PROPHYLAXIS AGAINST GRAFT VERSUS HOST DISEASE
     Dosage: UNK
     Route: 065
     Dates: start: 20101125
  3. MICAFUNGIN SODIUM [Concomitant]
     Indication: ANTIFUNGAL PROPHYLAXIS
     Dosage: UNK
     Route: 065
     Dates: start: 20101202, end: 20110105
  4. LANSOPRAZOLE [Concomitant]
     Indication: PROPHYLAXIS AGAINST GASTROINTESTINAL ULCER
     Dosage: UNK
     Route: 065
     Dates: start: 20101112, end: 20101201
  5. OMEPRAZOLE [Concomitant]
     Indication: PROPHYLAXIS AGAINST GASTROINTESTINAL ULCER
     Dosage: UNK
     Route: 065
     Dates: start: 20101202, end: 20101227
  6. ACYCLOVIR [Concomitant]
     Indication: ANTIVIRAL PROPHYLAXIS
     Dosage: UNK
     Route: 065
     Dates: start: 20101122, end: 20101201
  7. URSODIOL [Concomitant]
     Indication: THROMBOSIS PROPHYLAXIS
     Dosage: UNK
     Route: 065
     Dates: start: 20101112, end: 20101201
  8. FLUCONAZOLE [Concomitant]
     Indication: ANTIFUNGAL PROPHYLAXIS
     Dosage: UNK
     Route: 065
     Dates: start: 20101112, end: 20101201
  9. THYMOGLOBULIN [Suspect]
     Indication: BONE MARROW CONDITIONING REGIMEN
     Dosage: 62.5 MG, QD
     Route: 042
     Dates: start: 20101123, end: 20101124
  10. METHOTREXATE [Concomitant]
     Indication: PROPHYLAXIS AGAINST GRAFT VERSUS HOST DISEASE
     Dosage: UNK
     Route: 065
     Dates: start: 20101127, end: 20101202
  11. LEVOFLOXACIN [Concomitant]
     Indication: ANTIBIOTIC PROPHYLAXIS
     Dosage: UNK
     Route: 065
     Dates: start: 20101112, end: 20101122
  12. FLUDARA [Suspect]
     Indication: EPSTEIN-BARR VIRUS INFECTION
     Dosage: 36 MG, QD
     Route: 042
     Dates: start: 20101118, end: 20101122
  13. AZASETRON HYDROCHLORIDE [Concomitant]
     Indication: PROPHYLAXIS OF NAUSEA AND VOMITING
     Dosage: UNK
     Route: 065
     Dates: start: 20101118, end: 20101124
  14. ACYCLOVIR [Concomitant]
     Dosage: UNK
     Route: 065
     Dates: start: 20101202, end: 20110103
  15. SULFAMETHOPRIM [Concomitant]
     Indication: ANTIFUNGAL PROPHYLAXIS
     Dosage: UNK
     Route: 065
     Dates: start: 20101112, end: 20101125
  16. METHYLPEDNISOLONE SODIUM SUCCINATE [Concomitant]
     Indication: PREMEDICATION
     Dosage: UNK
     Route: 065
     Dates: start: 20101123, end: 20101124

REACTIONS (5)
  - NEUTROPHIL COUNT DECREASED [None]
  - INSOMNIA [None]
  - ACUTE GRAFT VERSUS HOST DISEASE IN SKIN [None]
  - POST TRANSPLANT LYMPHOPROLIFERATIVE DISORDER [None]
  - FEBRILE NEUTROPENIA [None]
